FAERS Safety Report 4585568-7 (Version None)
Quarter: 2005Q1

REPORT INFORMATION
  Report Type: 
  Country: None (occurrence: None)
  Receive Date: 20050214
  Receipt Date: 20050203
  Transmission Date: 20050727
  Serious: Yes (Other)
  Sender: FDA-Public Use
  Company Number: 2005-01-2161

PATIENT
  Age: 76 Year
  Sex: Female
  Weight: 53 kg

DRUGS (2)
  1. INTRON A [Suspect]
     Indication: MULTIPLE MYELOMA
     Dosage: 3 MIU TIW SUBCUTANEOUS
     Route: 058
     Dates: start: 20030830, end: 20041030
  2. THALIDOMIDE [Concomitant]

REACTIONS (2)
  - APICAL GRANULOMA [None]
  - IMPAIRED HEALING [None]
